FAERS Safety Report 10395072 (Version 1)
Quarter: 2014Q3

REPORT INFORMATION
  Report Type: Spontaneous
  Country: CH (occurrence: CH)
  Receive Date: 20140820
  Receipt Date: 20140820
  Transmission Date: 20150326
  Serious: Yes (Hospitalization)
  Sender: FDA-Public Use
  Company Number: CH-ELI_LILLY_AND_COMPANY-CH201408003872

PATIENT
  Age: 67 Year
  Sex: Male

DRUGS (6)
  1. PANTOZOL [Concomitant]
     Active Substance: PANTOPRAZOLE SODIUM
     Dosage: UNK
  2. SERESTA [Concomitant]
     Active Substance: OXAZEPAM
     Dosage: UNK
  3. CAVERJECT [Suspect]
     Active Substance: ALPROSTADIL
     Indication: PRODUCT USED FOR UNKNOWN INDICATION
     Dosage: 5 UG, UNK
     Dates: start: 201405, end: 20140703
  4. CYMBALTA [Suspect]
     Active Substance: DULOXETINE HYDROCHLORIDE
     Indication: PRODUCT USED FOR UNKNOWN INDICATION
     Dosage: 60 MG, QD
     Route: 048
  5. LIORESAL [Concomitant]
     Active Substance: BACLOFEN
     Dosage: UNK
  6. SYMFONA N [Concomitant]
     Active Substance: ORLISTAT
     Dosage: UNK

REACTIONS (12)
  - Arteriosclerosis [Unknown]
  - Ataxia [Unknown]
  - Nausea [Unknown]
  - Nystagmus [Unknown]
  - Headache [Unknown]
  - Carotid artery stenosis [Unknown]
  - Nuchal rigidity [Unknown]
  - Vertigo [Unknown]
  - Brain stem infarction [Unknown]
  - Cerebral vasoconstriction [Recovering/Resolving]
  - Carotid arteriosclerosis [Unknown]
  - Cerebellar syndrome [Unknown]

NARRATIVE: CASE EVENT DATE: 20140705
